FAERS Safety Report 18035721 (Version 1)
Quarter: 2020Q3

REPORT INFORMATION
  Report Type: Spontaneous
  Country: FR (occurrence: FR)
  Receive Date: 20200717
  Receipt Date: 20200717
  Transmission Date: 20201103
  Serious: Yes (Hospitalization)
  Sender: FDA-Public Use
  Company Number: FR-CADILA HEALTHCARE LIMITED-FR-ZYDUS-023033

PATIENT

DRUGS (3)
  1. AUGMENTIN [Suspect]
     Active Substance: AMOXICILLIN\CLAVULANATE POTASSIUM
     Indication: WOUND
     Dosage: 1.5 DOSAGE FORM,(INTERVAL :1 DAYS)
     Route: 048
     Dates: start: 20180610, end: 20180617
  2. ALLOPURINOL. [Suspect]
     Active Substance: ALLOPURINOL
     Indication: GOUT
     Dosage: 100 MILLIGRAM,(INTERVAL :1 DAYS)
     Route: 048
     Dates: start: 20180622, end: 20180703
  3. ORBENINE [Concomitant]
     Active Substance: CLOXACILLIN SODIUM
     Indication: WOUND
     Dosage: 3 GRAM,(INTERVAL :1 DAYS)
     Route: 048
     Dates: start: 20180604, end: 20180609

REACTIONS (2)
  - Hepatitis cholestatic [Recovering/Resolving]
  - Jaundice [Recovered/Resolved]

NARRATIVE: CASE EVENT DATE: 201807
